FAERS Safety Report 6490525-X (Version None)
Quarter: 2009Q4

REPORT INFORMATION
  Report Type: 
  Country: None (occurrence: None)
  Receive Date: 20091211
  Receipt Date: 20091202
  Transmission Date: 20100525
  Serious: Yes (Other)
  Sender: FDA-Public Use
  Company Number: HU-NAPPMUNDI-DEU-2009-0005741

PATIENT
  Sex: Female

DRUGS (7)
  1. OXY CR TAB [Suspect]
     Indication: OSTEOARTHRITIS
     Dosage: UNK
     Dates: start: 20091201
  2. CO-PRENESSA [Concomitant]
  3. BISOCARD                           /00802601/ [Concomitant]
  4. FURON                              /00032601/ [Concomitant]
  5. KALIUM-R [Concomitant]
  6. MILURIT [Concomitant]
  7. FRONTIN [Concomitant]
     Dosage: UNK

REACTIONS (4)
  - HYPERHIDROSIS [None]
  - PALPITATIONS [None]
  - TREMOR [None]
  - VERTIGO [None]
